FAERS Safety Report 4942510-4 (Version None)
Quarter: 2006Q1

REPORT INFORMATION
  Report Type: 
  Country: None (occurrence: None)
  Receive Date: 20060313
  Receipt Date: 20050324
  Transmission Date: 20060701
  Serious: No
  Sender: FDA-Public Use
  Company Number: US-GLAXOSMITHKLINE-A0551243A

PATIENT
  Age: 57 Year
  Sex: Female

DRUGS (3)
  1. NICORETTE (ORANGE) [Suspect]
     Dates: start: 20050322
  2. NICORETTE [Suspect]
     Dates: start: 20050307
  3. NICODERM CQ [Suspect]
     Dates: start: 20050316

REACTIONS (4)
  - DIZZINESS [None]
  - FEELING JITTERY [None]
  - HEADACHE [None]
  - NERVOUSNESS [None]
